FAERS Safety Report 12786166 (Version 1)
Quarter: 2016Q3

REPORT INFORMATION
  Report Type: Spontaneous
  Country: US (occurrence: US)
  Receive Date: 20160927
  Receipt Date: 20160927
  Transmission Date: 20161109
  Serious: Yes (Hospitalization, Other)
  Sender: FDA-Public Use
  Company Number: US-SUNOVION-2016SUN002350

PATIENT
  Age: 20 Year
  Sex: Male

DRUGS (17)
  1. CLOZAPINE. [Suspect]
     Active Substance: CLOZAPINE
     Dosage: UNK
  2. CLOZAPINE. [Suspect]
     Active Substance: CLOZAPINE
     Dosage: 200 MG, QD
  3. LATUDA [Suspect]
     Active Substance: LURASIDONE HYDROCHLORIDE
     Indication: SCHIZOPHRENIA
     Dosage: 80 MG, QD
     Route: 048
  4. CLOZAPINE. [Suspect]
     Active Substance: CLOZAPINE
     Dosage: 750 MG, UNK
  5. LATUDA [Suspect]
     Active Substance: LURASIDONE HYDROCHLORIDE
     Dosage: 240 MG, QD
     Route: 048
  6. RISPERIDONE. [Concomitant]
     Active Substance: RISPERIDONE
     Dosage: 3 MG, QD
  7. CLOZAPINE. [Suspect]
     Active Substance: CLOZAPINE
     Dosage: 450 MG, UNK
  8. CLOZAPINE. [Suspect]
     Active Substance: CLOZAPINE
     Dosage: 50 MG, UNK
  9. CLOZAPINE. [Suspect]
     Active Substance: CLOZAPINE
     Dosage: 100 MG, QD
  10. OLANZAPINE. [Suspect]
     Active Substance: OLANZAPINE
     Dosage: 40 MG, QD
  11. CLOZAPINE. [Suspect]
     Active Substance: CLOZAPINE
     Dosage: 25 MG, UNK
  12. CLOZAPINE. [Suspect]
     Active Substance: CLOZAPINE
     Dosage: UNK
  13. ZIPRASIDONE. [Concomitant]
     Active Substance: ZIPRASIDONE
     Dosage: 80 MG, QD
  14. CLOZAPINE. [Suspect]
     Active Substance: CLOZAPINE
     Dosage: 125 MG, QD
  15. CLOZAPINE. [Suspect]
     Active Substance: CLOZAPINE
     Dosage: 75 MG, UNK
  16. OLANZAPINE. [Suspect]
     Active Substance: OLANZAPINE
     Dosage: UNK
  17. PERPHENAZINE. [Concomitant]
     Active Substance: PERPHENAZINE
     Dosage: 24 MG, QD

REACTIONS (18)
  - Headache [Recovered/Resolved]
  - C-reactive protein increased [Recovered/Resolved]
  - Eosinophil count increased [Recovered/Resolved]
  - Paranoia [Recovered/Resolved]
  - Oropharyngeal pain [Recovered/Resolved]
  - Leukocytosis [Recovered/Resolved]
  - Troponin I increased [Recovered/Resolved]
  - Hallucination, auditory [Recovered/Resolved]
  - Ejection fraction decreased [Recovered/Resolved]
  - Pyrexia [Recovered/Resolved]
  - Mental impairment [Recovered/Resolved]
  - Nasal congestion [Recovered/Resolved]
  - Tachycardia [Recovered/Resolved]
  - Aggression [Recovered/Resolved]
  - Chest pain [Recovered/Resolved]
  - Ventricular hypokinesia [Recovered/Resolved]
  - Electrocardiogram T wave abnormal [Recovered/Resolved]
  - Myocarditis [Recovered/Resolved]
